FAERS Safety Report 7426731-7 (Version None)
Quarter: 2011Q2

REPORT INFORMATION
  Report Type: 
  Country: None (occurrence: None)
  Receive Date: 20110420
  Receipt Date: 20110413
  Transmission Date: 20111010
  Serious: Yes (Other)
  Sender: FDA-Public Use
  Company Number: US-ELI_LILLY_AND_COMPANY-US201104004529

PATIENT
  Age: 70 Year
  Sex: Male

DRUGS (3)
  1. LIPITOR [Concomitant]
  2. ASPIRIN [Concomitant]
  3. EFFIENT [Suspect]
     Indication: STENT PLACEMENT
     Dosage: 10 MG, QD
     Dates: start: 20101208, end: 20101223

REACTIONS (3)
  - ULCER HAEMORRHAGE [None]
  - TRANSIENT ISCHAEMIC ATTACK [None]
  - CAROTID ARTERY OCCLUSION [None]
